FAERS Safety Report 6004275-7 (Version None)
Quarter: 2008Q4

REPORT INFORMATION
  Report Type: 
  Country: None (occurrence: None)
  Receive Date: 20081215
  Receipt Date: 20081215
  Transmission Date: 20090506
  Serious: Yes (Hospitalization)
  Sender: FDA-Public Use
  Company Number: None

PATIENT
  Sex: Female
  Weight: 67.586 kg

DRUGS (1)
  1. METHYLPREDNISOLONE [Suspect]
     Indication: BRONCHITIS
     Dosage: TAPER DOES PACK TAPERING PO
     Route: 048
     Dates: start: 20080907, end: 20080910

REACTIONS (3)
  - CONDITION AGGRAVATED [None]
  - HALLUCINATION [None]
  - SUICIDAL IDEATION [None]
